FAERS Safety Report 26080241 (Version 1)
Quarter: 2025Q4

REPORT INFORMATION
  Report Type: Report from Study
  Country: US (occurrence: None)
  Receive Date: 20251124
  Receipt Date: 20251124
  Transmission Date: 20260117
  Serious: Yes (Other)
  Sender: APOTEX
  Company Number: US-APOTEX-2025AP032766

PATIENT
  Age: 33 Year
  Sex: Female

DRUGS (5)
  1. MYCOPHENOLIC ACID [Suspect]
     Active Substance: MYCOPHENOLIC ACID
     Indication: Microangiopathic haemolytic anaemia
     Dosage: UNK
     Route: 065
  2. CAPLACIZUMAB [Concomitant]
     Active Substance: CAPLACIZUMAB
     Indication: Microangiopathic haemolytic anaemia
     Dosage: UNK
     Route: 065
  3. RITUXIMAB [Concomitant]
     Active Substance: RITUXIMAB
     Indication: Microangiopathic haemolytic anaemia
     Dosage: 325 MICROGRAM/SQ. METER (2 DOSES OF RITUXIMAB )
     Route: 065
  4. RITUXIMAB [Concomitant]
     Active Substance: RITUXIMAB
     Dosage: 325 MICROGRAM/SQ. METER (4 DOSES OF RITUXIMAB)
     Route: 065
  5. BORTEZOMIB [Concomitant]
     Active Substance: BORTEZOMIB
     Indication: Microangiopathic haemolytic anaemia
     Dosage: UNK
     Route: 065

REACTIONS (1)
  - Neutropenia [Unknown]
